FAERS Safety Report 9237145 (Version 1)
Quarter: 2013Q2

REPORT INFORMATION
  Report Type: Spontaneous
  Country: US (occurrence: US)
  Receive Date: 20130417
  Receipt Date: 20130417
  Transmission Date: 20140414
  Serious: Yes (Other)
  Sender: FDA-Public Use
  Company Number: CHPA2013US006311

PATIENT
  Age: 43 Year
  Sex: Female

DRUGS (1)
  1. TRANSDERM SCOP [Suspect]
     Indication: MOTION SICKNESS
     Dosage: UNK, UNK
     Route: 062
     Dates: start: 20130325

REACTIONS (2)
  - Blindness [Recovered/Resolved]
  - Malaise [Recovered/Resolved]
